FAERS Safety Report 8791238 (Version 1)
Quarter: 2012Q4

REPORT INFORMATION
  Report Type: Spontaneous
  Country: US (occurrence: None)
  Receive Date: 20120914
  Receipt Date: 20120914
  Transmission Date: 20130627
  Serious: Yes (Hospitalization)
  Sender: FDA-Public Use
  Company Number: None

PATIENT
  Age: 74 Year
  Sex: Female
  Weight: 88.63 kg

DRUGS (30)
  1. VOLTAREN [Suspect]
     Route: 048
  2. ASA [Suspect]
     Route: 048
  3. CHONDROITIN/GLUCOS [Concomitant]
  4. TRIAMTEREN/HCTZ [Concomitant]
  5. NORVASC [Concomitant]
  6. CLARITIN [Concomitant]
  7. MVI [Concomitant]
  8. NORTRIPTYLINE [Concomitant]
  9. FLEXERIL [Concomitant]
  10. LEVOTHYROXINE [Concomitant]
  11. FISH OIL [Concomitant]
  12. CHOLECELCI NEXIUM [Concomitant]
  13. TRICOR [Concomitant]
  14. SPIRIVA [Concomitant]
  15. PROAIR HFA [Concomitant]
  16. MAG OX [Concomitant]
  17. PERCOCET [Concomitant]
  18. CLONIDINE [Concomitant]
  19. BUDESONIDE [Concomitant]
  20. TOPAMAX [Concomitant]
  21. MUCINEX [Concomitant]
  22. LASIX [Concomitant]
  23. PERFOROMIST [Concomitant]
  24. ALBUTEROL [Concomitant]
  25. TYLENOL ARTHRITIS [Concomitant]
  26. ROBITUSSIN-DM [Concomitant]
  27. GAVISCON [Concomitant]
  28. HYDROCODONE/APAP [Concomitant]
  29. BETAMETHASONE [Concomitant]
  30. CLOBETASOL [Concomitant]

REACTIONS (1)
  - Cardiac disorder [None]
